FAERS Safety Report 9216155 (Version 1)
Quarter: 2013Q2

REPORT INFORMATION
  Report Type: Spontaneous
  Country: GB (occurrence: None)
  Receive Date: 20130404
  Receipt Date: 20130404
  Transmission Date: 20140414
  Serious: Yes (Life-Threatening, Other)
  Sender: FDA-Public Use
  Company Number: 1660354

PATIENT
  Age: 9 Year
  Sex: Female
  Weight: 10.43 kg

DRUGS (1)
  1. (MEROPENEM) [Suspect]
     Indication: INFECTION
     Route: 042
     Dates: start: 20130311, end: 20130311

REACTIONS (6)
  - Cyanosis [None]
  - Anaphylactic reaction [None]
  - Incorrect dose administered [None]
  - Incorrect drug administration rate [None]
  - Tachycardia [None]
  - No reaction on previous exposure to drug [None]
